FAERS Safety Report 10260010 (Version 4)
Quarter: 2014Q4

REPORT INFORMATION
  Report Type: Report from Study
  Country: US (occurrence: US)
  Receive Date: 20140625
  Receipt Date: 20141120
  Transmission Date: 20150528
  Serious: Yes (Death, Life-Threatening, Hospitalization, Other)
  Sender: FDA-Public Use
  Company Number: US-ABBVIE-14P-163-1251591-00

PATIENT
  Age: 77 Year
  Sex: Male

DRUGS (26)
  1. HUMIRA [Suspect]
     Active Substance: ADALIMUMAB
     Indication: COLITIS ULCERATIVE
     Dosage: INITIAL DOSE
     Route: 058
     Dates: start: 201404, end: 201404
  2. VITAMIN D [Concomitant]
     Active Substance: CHOLECALCIFEROL
     Indication: PRODUCT USED FOR UNKNOWN INDICATION
  3. PREDNISONE. [Concomitant]
     Active Substance: PREDNISONE
     Indication: COLITIS ULCERATIVE
  4. PREDNISONE. [Concomitant]
     Active Substance: PREDNISONE
  5. LOMOTIL [Concomitant]
     Active Substance: ATROPINE SULFATE\DIPHENOXYLATE HYDROCHLORIDE
     Indication: PRODUCT USED FOR UNKNOWN INDICATION
  6. VITAMIN B12 [Concomitant]
     Active Substance: CYANOCOBALAMIN
     Indication: PRODUCT USED FOR UNKNOWN INDICATION
  7. PROBIOTIC [Concomitant]
     Active Substance: PROBIOTICS NOS
     Indication: PRODUCT USED FOR UNKNOWN INDICATION
  8. FERROUS SULFATE [Concomitant]
     Active Substance: FERROUS SULFATE\FERROUS SULFATE, DRIED
     Indication: PRODUCT USED FOR UNKNOWN INDICATION
  9. SODIUM BICARBONATE. [Concomitant]
     Active Substance: SODIUM BICARBONATE
     Indication: PRODUCT USED FOR UNKNOWN INDICATION
  10. ULORIC [Concomitant]
     Active Substance: FEBUXOSTAT
     Indication: PRODUCT USED FOR UNKNOWN INDICATION
  11. HUMIRA [Suspect]
     Active Substance: ADALIMUMAB
     Route: 058
     Dates: start: 20140501
  12. UNKNOWN THYROID MEDICATION [Concomitant]
     Indication: THYROID DISORDER
  13. PROTONIX [Concomitant]
     Active Substance: PANTOPRAZOLE SODIUM
     Indication: PRODUCT USED FOR UNKNOWN INDICATION
     Dosage: DELAYED RELEASE
  14. XARELTO [Concomitant]
     Active Substance: RIVAROXABAN
     Indication: PRODUCT USED FOR UNKNOWN INDICATION
  15. FOLIC ACID. [Concomitant]
     Active Substance: FOLIC ACID
     Indication: PRODUCT USED FOR UNKNOWN INDICATION
  16. MILK THISTLE [Concomitant]
     Active Substance: MILK THISTLE
     Indication: PRODUCT USED FOR UNKNOWN INDICATION
  17. PROSCAR [Concomitant]
     Active Substance: FINASTERIDE
     Indication: PRODUCT USED FOR UNKNOWN INDICATION
  18. SYNTHROID [Concomitant]
     Active Substance: LEVOTHYROXINE SODIUM
     Indication: PRODUCT USED FOR UNKNOWN INDICATION
  19. VITAMIN B-6 [Concomitant]
     Indication: PRODUCT USED FOR UNKNOWN INDICATION
  20. HUMIRA [Suspect]
     Active Substance: ADALIMUMAB
     Dosage: WEEK TWO
     Route: 058
     Dates: start: 20140417, end: 20140417
  21. METHYLPREDNISOLONE. [Suspect]
     Active Substance: METHYLPREDNISOLONE
     Indication: PRODUCT USED FOR UNKNOWN INDICATION
     Route: 065
  22. PROTONIX [Concomitant]
     Active Substance: PANTOPRAZOLE SODIUM
     Indication: PRODUCT USED FOR UNKNOWN INDICATION
  23. COUMADIN [Suspect]
     Active Substance: WARFARIN SODIUM
     Indication: PRODUCT USED FOR UNKNOWN INDICATION
     Route: 065
  24. UNKNOWN HEART MEDICATION [Concomitant]
     Active Substance: UNSPECIFIED INGREDIENT
     Indication: CARDIAC DISORDER
  25. AMIODARONE HCL [Concomitant]
     Active Substance: AMIODARONE HYDROCHLORIDE
     Indication: PRODUCT USED FOR UNKNOWN INDICATION
  26. METOPROLOL SUCCINATE. [Concomitant]
     Active Substance: METOPROLOL SUCCINATE
     Indication: PRODUCT USED FOR UNKNOWN INDICATION

REACTIONS (26)
  - Malaise [Fatal]
  - Colitis [Unknown]
  - Bandaemia [Unknown]
  - Cellulitis [Recovered/Resolved]
  - Hypotension [Unknown]
  - Blood pressure decreased [Unknown]
  - Acute prerenal failure [Unknown]
  - Sepsis [Unknown]
  - Lower gastrointestinal haemorrhage [Unknown]
  - Acute kidney injury [Unknown]
  - Immunodeficiency [Unknown]
  - Ileus [Unknown]
  - Fatigue [Unknown]
  - White blood cell count increased [Unknown]
  - Asthenia [Unknown]
  - Occult blood positive [Unknown]
  - Acute kidney injury [Unknown]
  - Nausea [Unknown]
  - Cardio-respiratory arrest [Fatal]
  - Vomiting [Unknown]
  - Anticoagulation drug level above therapeutic [Unknown]
  - Dehydration [Unknown]
  - International normalised ratio increased [Unknown]
  - CHAD2DS2-VASc score increased [Unknown]
  - Decreased appetite [Unknown]
  - Hiccups [Unknown]

NARRATIVE: CASE EVENT DATE: 2014
